FAERS Safety Report 5097335-9 (Version None)
Quarter: 2006Q3

REPORT INFORMATION
  Report Type: 
  Country: None (occurrence: None)
  Receive Date: 20060906
  Receipt Date: 20060831
  Transmission Date: 20061208
  Serious: Yes (Hospitalization)
  Sender: FDA-Public Use
  Company Number: PL-GLAXOSMITHKLINE-B0437018A

PATIENT
  Age: 73 Year
  Sex: Female

DRUGS (1)
  1. AUGMENTIN [Suspect]
     Indication: UPPER RESPIRATORY TRACT INFECTION
     Dosage: 1G TWICE PER DAY
     Route: 048
     Dates: start: 20060719, end: 20060726

REACTIONS (4)
  - ERYTHEMA [None]
  - HYPERSENSITIVITY [None]
  - SKIN DISORDER [None]
  - SKIN REACTION [None]
